FAERS Safety Report 5421796-6 (Version None)
Quarter: 2007Q3

REPORT INFORMATION
  Report Type: 
  Country: None (occurrence: None)
  Receive Date: 20070820
  Receipt Date: 20070806
  Transmission Date: 20080115
  Serious: Yes (Hospitalization)
  Sender: FDA-Public Use
  Company Number: B0483313A

PATIENT
  Age: 43 Year
  Sex: Male

DRUGS (12)
  1. ZIDOVUDINE [Suspect]
     Indication: HIV INFECTION
  2. LAMIVUDINE [Suspect]
     Indication: HIV INFECTION
  3. EFAVIRENZ [Suspect]
     Indication: HIV INFECTION
  4. COMBIVIR [Suspect]
     Indication: HIV INFECTION
  5. ATAZANAVIR (FORMULATION UNKNOWN)(ATAZANAVIR) [Suspect]
     Indication: HIV INFECTION
  6. RITONAVIR (FORMULATION UNKNOWN) (RITONAVIR) [Suspect]
     Indication: HIV INFECTION
  7. FLUCONAZOLE [Concomitant]
  8. COTRIM [Concomitant]
  9. ISONIAZID [Concomitant]
  10. OFLOXACIN [Concomitant]
  11. ETHAMBUTOL HYDROCHLORIDE [Concomitant]
  12. PYRAZINAMIDE [Concomitant]

REACTIONS (3)
  - BK VIRUS INFECTION [None]
  - CEREBRAL TOXOPLASMOSIS [None]
  - ENCEPHALITIS [None]
